FAERS Safety Report 6403936-5 (Version None)
Quarter: 2009Q4

REPORT INFORMATION
  Report Type: 
  Country: None (occurrence: None)
  Receive Date: 20091015
  Receipt Date: 20091015
  Transmission Date: 20100525
  Serious: Yes (Disabling)
  Sender: FDA-Public Use
  Company Number: None

PATIENT
  Sex: Male
  Weight: 63.6 kg

DRUGS (2)
  1. FINASTERIDE [Suspect]
     Indication: BENIGN PROSTATIC HYPERPLASIA
     Dosage: 5 MG QD 047
     Dates: start: 20060101, end: 20090701
  2. FINASTERIDE [Suspect]
     Indication: PROSTATOMEGALY
     Dosage: 5 MG QD 047
     Dates: start: 20060101, end: 20090701

REACTIONS (10)
  - AMNESIA [None]
  - ANXIETY [None]
  - APATHY [None]
  - CONFUSIONAL STATE [None]
  - DEPRESSION [None]
  - DISTURBANCE IN ATTENTION [None]
  - DRUG INEFFECTIVE [None]
  - EMOTIONAL DISORDER [None]
  - GENERAL PHYSICAL HEALTH DETERIORATION [None]
  - MENTAL DISORDER [None]
